FAERS Safety Report 9307088 (Version 2)
Quarter: 2013Q2

REPORT INFORMATION
  Report Type: Spontaneous
  Country: US (occurrence: US)
  Receive Date: 20130523
  Receipt Date: 20130624
  Transmission Date: 20140414
  Serious: No
  Sender: FDA-Public Use
  Company Number: US-B.I. PHARMACEUTICALS,INC./RIDGEFIELD-2013-BI-14305BP

PATIENT
  Age: 75 Year
  Sex: Female
  Weight: 83 kg

DRUGS (1)
  1. COMBIVENT [Suspect]
     Indication: BRONCHITIS CHRONIC
     Dosage: STRENGTH: 18 MCG / 103 MCG; DAILY DOSE: 108 MCG/618 MCG
     Route: 055
     Dates: start: 2010

REACTIONS (1)
  - Mental disorder [Recovered/Resolved]
